FAERS Safety Report 15729187 (Version 1)
Quarter: 2018Q4

REPORT INFORMATION
  Report Type: Spontaneous
  Country: US (occurrence: US)
  Receive Date: 20181215
  Receipt Date: 20181215
  Transmission Date: 20190205
  Serious: Yes (Disabling)
  Sender: FDA-Public Use
  Company Number: None

PATIENT
  Age: 43 Year
  Sex: Female
  Weight: 67.5 kg

DRUGS (6)
  1. CLONAZEPAM GENERIC FOR KLONOPIN [Suspect]
     Active Substance: CLONAZEPAM
     Indication: GENERALISED ANXIETY DISORDER
     Dosage: ?          QUANTITY:1 TABLET(S);?
     Route: 048
     Dates: start: 20180318
  2. ATENOLOL. [Concomitant]
     Active Substance: ATENOLOL
  3. LO LOESTRIN FE [Concomitant]
     Active Substance: ETHINYL ESTRADIOL\NORETHINDRONE ACETATE
  4. CETIRIZINE [Concomitant]
     Active Substance: CETIRIZINE HYDROCHLORIDE
  5. CLONAXAPAM [Concomitant]
  6. CALTRATE [Concomitant]
     Active Substance: CALCIUM CARBONATE

REACTIONS (4)
  - Drug ineffective [None]
  - Anxiety [None]
  - Depression [None]
  - Chest pain [None]

NARRATIVE: CASE EVENT DATE: 20181214
